FAERS Safety Report 13607738 (Version 2)
Quarter: 2017Q2

REPORT INFORMATION
  Report Type: Report from Study
  Country: US (occurrence: US)
  Receive Date: 20170602
  Receipt Date: 20170620
  Transmission Date: 20170830
  Serious: Yes (Death)
  Sender: FDA-Public Use
  Company Number: US-TAIHO ONCOLOGY INC-EU-2017-00829

PATIENT
  Age: 66 Year
  Sex: Male

DRUGS (11)
  1. DEXAMETHASONE. [Concomitant]
     Active Substance: DEXAMETHASONE
     Dosage: NI
  2. POTASSIUM CHLORIDE. [Concomitant]
     Active Substance: POTASSIUM CHLORIDE
     Dosage: NI
  3. DIGOXIN. [Concomitant]
     Active Substance: DIGOXIN
     Dosage: NI
  4. CARVEDILOL. [Concomitant]
     Active Substance: CARVEDILOL
     Dosage: NI
  5. LONSURF [Suspect]
     Active Substance: TIPIRACIL HYDROCHLORIDE\TRIFLURIDINE
     Indication: COLON CANCER
     Dosage: 3 PILLS
     Route: 048
     Dates: start: 20170213
  6. HYDROCODONE [Concomitant]
     Active Substance: HYDROCODONE
     Dosage: NI
  7. ACETYLSALICYLIC ACID [Concomitant]
     Active Substance: ASPIRIN
  8. ALDACTONE [Concomitant]
     Active Substance: SPIRONOLACTONE
     Dosage: NI
  9. COQ 10 [Concomitant]
     Active Substance: UBIDECARENONE
  10. EPINEPHRINE. [Concomitant]
     Active Substance: EPINEPHRINE
     Dosage: NI
  11. LISINOPRIL. [Concomitant]
     Active Substance: LISINOPRIL
     Dosage: NI

REACTIONS (3)
  - Cardiac failure [Fatal]
  - Disease progression [Fatal]
  - Skin disorder [Fatal]

NARRATIVE: CASE EVENT DATE: 20170521
